FAERS Safety Report 6534782-X (Version None)
Quarter: 2010Q1

REPORT INFORMATION
  Report Type: 
  Country: None (occurrence: None)
  Receive Date: 20100112
  Receipt Date: 20091230
  Transmission Date: 20100710
  Serious: Yes (Disabling, Other)
  Sender: FDA-Public Use
  Company Number: FR-PFIZER INC-2007103470

PATIENT
  Sex: Male

DRUGS (9)
  1. VFEND [Suspect]
     Indication: ASPERGILLOSIS
     Dosage: 200 MG, 2X/DAY
     Route: 048
     Dates: start: 20061128, end: 20070801
  2. VFEND [Suspect]
     Dosage: 200 MG, 1X/DAY
     Route: 048
     Dates: start: 20070801, end: 20070911
  3. VFEND [Suspect]
     Dosage: 200 MG, 2X/DAY
     Route: 048
     Dates: start: 20070911, end: 20071120
  4. POSACONAZOLE [Suspect]
     Indication: ASPERGILLOSIS
     Dosage: 400 MG, 2X/DAY
     Dates: start: 20071120
  5. FONZYLANE [Concomitant]
  6. PLAVIX [Concomitant]
  7. ZOCOR [Concomitant]
     Indication: ARTERIAL DISORDER
     Dosage: UNK
  8. DILTIAZEM [Concomitant]
  9. CORTANCYL [Concomitant]

REACTIONS (3)
  - MYALGIA [None]
  - NEUROPATHY PERIPHERAL [None]
  - PARAESTHESIA [None]
